FAERS Safety Report 9296593 (Version 4)
Quarter: 2013Q3

REPORT INFORMATION
  Report Type: Spontaneous
  Country: US (occurrence: None)
  Receive Date: 20130515
  Receipt Date: 20130711
  Transmission Date: 20140515
  Serious: Yes (Disabling, Other)
  Sender: FDA-Public Use
  Company Number: ACO_35900_2013

PATIENT
  Age: 66 Year
  Sex: Female
  Weight: 71.2 kg

DRUGS (6)
  1. AMPYRA [Suspect]
     Indication: GAIT DISTURBANCE
     Route: 048
     Dates: end: 201305
  2. OMEPRAZOLE (OMEPRAZOLE) [Concomitant]
  3. OXYBUTYNIN CHLORIDE (OXYBUTYNIN HYDROCHLORIDE) [Concomitant]
  4. ESTRADIOL (ESTRADIOL) (GEL) [Concomitant]
  5. VITAMIN D (ERGOCALCIFERON) [Concomitant]
  6. ANTIDEPRESSANTS ONGOING [Concomitant]

REACTIONS (7)
  - Abasia [None]
  - Movement disorder [None]
  - Drug dose omission [None]
  - Dysstasia [None]
  - Fall [None]
  - Gait disturbance [None]
  - Malaise [None]
